FAERS Safety Report 19953547 (Version 7)
Quarter: 2023Q1

REPORT INFORMATION
  Report Type: Spontaneous
  Country: US (occurrence: US)
  Receive Date: 20211013
  Receipt Date: 20230320
  Transmission Date: 20230417
  Serious: Yes (Disabling, Other)
  Sender: FDA-Public Use
  Company Number: US-OTSUKA-2021_034910

PATIENT
  Sex: Female
  Weight: 68.04 kg

DRUGS (6)
  1. ABILIFY [Suspect]
     Active Substance: ARIPIPRAZOLE
     Indication: Post-traumatic stress disorder
     Dosage: UNK, QD
     Route: 065
     Dates: start: 2007
  2. ABILIFY [Suspect]
     Active Substance: ARIPIPRAZOLE
     Indication: Anxiety
     Dosage: 5 MG
     Route: 065
     Dates: start: 2007
  3. ABILIFY [Suspect]
     Active Substance: ARIPIPRAZOLE
     Indication: Psychotic disorder
     Dosage: UNK
     Route: 065
     Dates: start: 2008
  4. ARIPIPRAZOLE [Suspect]
     Active Substance: ARIPIPRAZOLE
     Indication: Gambling
     Dosage: UNK
     Route: 065
     Dates: start: 200801
  5. LAMICTAL [Concomitant]
     Active Substance: LAMOTRIGINE
     Indication: Product used for unknown indication
     Dosage: UNK
     Route: 065
  6. COGENTIN [Concomitant]
     Active Substance: BENZTROPINE MESYLATE
     Indication: Product used for unknown indication
     Dosage: UNK
     Route: 065

REACTIONS (46)
  - Impaired driving ability [Unknown]
  - Drug dependence [Not Recovered/Not Resolved]
  - Dementia [Unknown]
  - Intentional self-injury [Unknown]
  - Alcoholic [Unknown]
  - Foot fracture [Unknown]
  - Laryngitis [Unknown]
  - Adverse event [Unknown]
  - Cerebral disorder [Unknown]
  - Condition aggravated [Unknown]
  - Loss of personal independence in daily activities [Unknown]
  - Nerve injury [Unknown]
  - Skin irritation [Unknown]
  - Trance [Unknown]
  - Psychotic disorder [Unknown]
  - Attention deficit hyperactivity disorder [Unknown]
  - Fear [Unknown]
  - Mood swings [Not Recovered/Not Resolved]
  - Renal disorder [Unknown]
  - Thinking abnormal [Unknown]
  - Mental disorder [Unknown]
  - Visual impairment [Unknown]
  - Obsessive-compulsive disorder [Unknown]
  - Panic disorder [Unknown]
  - Emotional poverty [Unknown]
  - Behaviour disorder [Unknown]
  - Fear [Unknown]
  - Visual impairment [Unknown]
  - Movement disorder [Unknown]
  - Confusional state [Not Recovered/Not Resolved]
  - Feeling abnormal [Unknown]
  - Gait disturbance [Unknown]
  - Muscle twitching [Unknown]
  - Aggression [Unknown]
  - Alopecia [Unknown]
  - Impulse-control disorder [Unknown]
  - Tremor [Unknown]
  - Dyskinesia [Unknown]
  - Anxiety [Unknown]
  - Blood glucose increased [Unknown]
  - Dizziness [Unknown]
  - Gambling disorder [Unknown]
  - Product use in unapproved indication [Unknown]
  - Product dose omission issue [Unknown]
  - Insurance issue [Unknown]
  - Economic problem [Unknown]

NARRATIVE: CASE EVENT DATE: 20180101
